FAERS Safety Report 6643622-X (Version None)
Quarter: 2010Q1

REPORT INFORMATION
  Report Type: 
  Country: None (occurrence: None)
  Receive Date: 20100320
  Receipt Date: 20100311
  Transmission Date: 20100710
  Serious: Yes (Other)
  Sender: FDA-Public Use
  Company Number: JP-JNJFOC-20100108437

PATIENT
  Sex: Male

DRUGS (17)
  1. CRAVIT [Suspect]
     Indication: URINARY TRACT INFECTION
     Route: 048
  2. PREDNISOLONE [Concomitant]
     Indication: PEMPHIGOID
     Route: 065
  3. ASPIRIN [Concomitant]
     Indication: CEREBRAL INFARCTION
     Route: 065
  4. ASPARA-CA [Concomitant]
     Indication: PEMPHIGOID
     Route: 065
  5. ASPARA-CA [Concomitant]
     Route: 065
  6. FAMOTIDINE [Concomitant]
     Indication: GASTRITIS
     Route: 065
  7. FAMOTIDINE [Concomitant]
     Route: 065
  8. LENDORMIN D [Concomitant]
     Indication: INSOMNIA
     Route: 065
  9. LENDORMIN D [Concomitant]
     Route: 065
  10. POLAPREZINC [Concomitant]
     Indication: ZINC DEFICIENCY
     Route: 065
  11. POLAPREZINC [Concomitant]
     Route: 065
  12. NITRODERM [Concomitant]
     Indication: CARDIAC FAILURE
     Route: 065
  13. NITRODERM [Concomitant]
     Route: 065
  14. RACOL [Concomitant]
     Indication: DYSPHAGIA
     Route: 065
  15. RACOL [Concomitant]
     Route: 065
  16. RACOL [Concomitant]
     Indication: CEREBRAL INFARCTION
     Route: 065
  17. RACOL [Concomitant]
     Route: 065

REACTIONS (2)
  - ALTERED STATE OF CONSCIOUSNESS [None]
  - HYPONATRAEMIA [None]
